FAERS Safety Report 4972570-6 (Version None)
Quarter: 2006Q1

REPORT INFORMATION
  Report Type: 
  Country: None (occurrence: None)
  Receive Date: 20060216
  Receipt Date: 20051128
  Transmission Date: 20060701
  Serious: No
  Sender: FDA-Public Use
  Company Number: TPA2005A01107

PATIENT
  Age: 48 Year
  Sex: Female
  Weight: 95.709 kg

DRUGS (4)
  1. ROZEREM [Suspect]
     Indication: INSOMNIA
     Dosage: 8 MG, QHS, PER ORAL; 16 MG, HS, PER ORAL
     Route: 048
     Dates: start: 20050915, end: 20050923
  2. ROZEREM [Suspect]
     Indication: INSOMNIA
     Dosage: 8 MG, QHS, PER ORAL; 16 MG, HS, PER ORAL
     Route: 048
     Dates: start: 20050922, end: 20050923
  3. SYNTHROID [Concomitant]
  4. ALPRAZOLAM [Concomitant]

REACTIONS (8)
  - CHEST DISCOMFORT [None]
  - DRUG INEFFECTIVE [None]
  - DYSARTHRIA [None]
  - HALLUCINATION [None]
  - HEADACHE [None]
  - INSOMNIA [None]
  - OVERDOSE [None]
  - PHOTOPSIA [None]
